FAERS Safety Report 24274124 (Version 1)
Quarter: 2024Q3

REPORT INFORMATION
  Report Type: Spontaneous
  Country: US (occurrence: US)
  Receive Date: 20240902
  Receipt Date: 20240902
  Transmission Date: 20241016
  Serious: No
  Sender: LEO PHARM
  Company Number: US-LEO Pharma-373145

PATIENT
  Age: 22 Year
  Sex: Female

DRUGS (1)
  1. ADBRY [Suspect]
     Active Substance: TRALOKINUMAB-LDRM
     Indication: Dermatitis atopic
     Route: 058

REACTIONS (7)
  - Dizziness [Unknown]
  - Swelling of eyelid [Unknown]
  - Fatigue [Unknown]
  - Visual impairment [Unknown]
  - White blood cell count increased [Unknown]
  - Confusional state [Unknown]
  - Injection site reaction [Unknown]
